FAERS Safety Report 6768763-8 (Version None)
Quarter: 2010Q2

REPORT INFORMATION
  Report Type: 
  Country: None (occurrence: None)
  Receive Date: 20100611
  Receipt Date: 20100602
  Transmission Date: 20101027
  Serious: Yes (Other)
  Sender: FDA-Public Use
  Company Number: IMP_05034_2010

PATIENT
  Sex: Male

DRUGS (5)
  1. PYRIDOSTIGMINE BROMIDE [Suspect]
     Indication: MYASTHENIA GRAVIS
     Dosage: 60 MG QID, PRESCRIPTION REFILLED ON 07-MAY-2010)
     Dates: start: 20070101
  2. PREDNISONE [Concomitant]
  3. ANTIBIOTICS [Concomitant]
  4. FLOMAX [Concomitant]
  5. IMURAN [Concomitant]

REACTIONS (9)
  - CONDITION AGGRAVATED [None]
  - DRUG INEFFECTIVE [None]
  - FACIAL PALSY [None]
  - HYPOAESTHESIA ORAL [None]
  - MYASTHENIA GRAVIS [None]
  - PARESIS [None]
  - PRODUCT QUALITY ISSUE [None]
  - PRODUCT SUBSTITUTION ISSUE [None]
  - SUDDEN VISUAL LOSS [None]
